FAERS Safety Report 7072915 (Version 2)
Quarter: 2014Q2

REPORT INFORMATION
  Report Type: Spontaneous
  Country: US (occurrence: None)
  Receive Date: 20090724
  Receipt Date: 20140521
  Transmission Date: 20141212
  Serious: Yes (Hospitalization, Other)
  Sender: FDA-Public Use
  Company Number: 2009S1005748

PATIENT
  Age: 56 Year
  Sex: Female

DRUGS (6)
  1. FLEET PHOSPHO-SODA ORAL SALINE LAXATIVE, GINGER-LEMON FLAVOR [Suspect]
     Indication: COLONOSCOPY
     Route: 048
     Dates: start: 20070605, end: 20070606
  2. BENAZEPRIL (BENAZEPRIL) [Concomitant]
  3. LASIX (FUROSEMIDE) [Concomitant]
  4. VIRTEC (CETRIZINE) [Concomitant]
  5. PREMARIN (ESTROGENS CONJUGATED) [Concomitant]
  6. DULCOLAX (BISACODYL) [Suspect]
     Route: 048

REACTIONS (17)
  - Palpitations [None]
  - Angioedema [None]
  - Renal failure acute [None]
  - Renal tubular necrosis [None]
  - Tubulointerstitial nephritis [None]
  - Urticaria [None]
  - Blood calcium decreased [None]
  - Hyperkalaemia [None]
  - Pulmonary oedema [None]
  - Pleural effusion [None]
  - Decreased appetite [None]
  - Chest pain [None]
  - Menopausal disorder [None]
  - Migraine [None]
  - Photophobia [None]
  - Vision blurred [None]
  - Nephrogenic anaemia [None]
